FAERS Safety Report 6693624-2 (Version None)
Quarter: 2010Q2

REPORT INFORMATION
  Report Type: 
  Country: None (occurrence: None)
  Receive Date: 20100420
  Receipt Date: 20100407
  Transmission Date: 20101027
  Serious: Yes (Life-Threatening, Hospitalization)
  Sender: FDA-Public Use
  Company Number: 2010AL002201

PATIENT
  Age: 78 Year
  Sex: Female

DRUGS (5)
  1. TRAMADOL HYDROCHLORIDE [Suspect]
     Indication: BACK PAIN
     Dosage: 100 MG; BID; PO
     Route: 048
     Dates: end: 20100322
  2. FELODIPINE [Concomitant]
  3. ALENDRONIC ACID [Concomitant]
  4. ATORVASTATIN [Concomitant]
  5. MIRTAZAPINE [Concomitant]

REACTIONS (2)
  - FALL [None]
  - ORTHOSTATIC HYPOTENSION [None]
